FAERS Safety Report 9842932 (Version 1)
Quarter: 2014Q1

REPORT INFORMATION
  Report Type: Report from Study
  Country: US (occurrence: US)
  Receive Date: 20140124
  Receipt Date: 20140124
  Transmission Date: 20141002
  Serious: Yes (Hospitalization, Other)
  Sender: FDA-Public Use
  Company Number: US-GLAXOSMITHKLINE-A1057890A

PATIENT
  Age: 69 Year
  Sex: Male
  Weight: 108.3 kg

DRUGS (24)
  1. OFATUMUMAB [Suspect]
     Indication: CHRONIC LYMPHOCYTIC LEUKAEMIA
     Dosage: 300MG CYCLIC
     Route: 042
     Dates: start: 20131002
  2. INVESTIGATIONAL DRUG [Suspect]
     Indication: CHRONIC LYMPHOCYTIC LEUKAEMIA
     Dosage: 150MG TWICE PER DAY
     Route: 048
     Dates: start: 20131002
  3. COLACE [Concomitant]
     Dates: start: 20130830
  4. RETIN A [Concomitant]
  5. VITAMIN D3 [Concomitant]
     Dates: start: 2011
  6. ALDACTONE [Concomitant]
     Dates: start: 2011, end: 20131003
  7. ROCALTROL [Concomitant]
     Dates: start: 2011
  8. LASIX [Concomitant]
     Dates: start: 2009
  9. PROSCAR [Concomitant]
     Dates: start: 2003
  10. CLEOCIN T [Concomitant]
     Dates: start: 2003
  11. TENORMIN [Concomitant]
     Dates: start: 2009
  12. ZYLOPRIM [Concomitant]
     Dates: start: 2009
  13. MINOXIDIL [Concomitant]
     Dates: start: 2007
  14. COZAAR [Concomitant]
     Dates: start: 2009, end: 20131003
  15. ZETIA [Concomitant]
     Dates: start: 2005
  16. MULTIVITAMIN [Concomitant]
  17. FISH OIL [Concomitant]
  18. VITAMIN B [Concomitant]
  19. FLAXSEED OIL [Concomitant]
  20. TYLENOL [Concomitant]
  21. ZYRTEC [Concomitant]
     Dates: start: 20131002
  22. DECADRON [Concomitant]
     Dates: start: 20131002
  23. BACTRIM DS [Concomitant]
     Dates: start: 20131002
  24. ACYCLOVIR [Concomitant]
     Dates: start: 20131003

REACTIONS (1)
  - Hyperkalaemia [Recovered/Resolved]
